FAERS Safety Report 9030907 (Version 4)
Quarter: 2013Q2

REPORT INFORMATION
  Report Type: Report from Study
  Country: US (occurrence: US)
  Receive Date: 20130123
  Receipt Date: 20130412
  Transmission Date: 20140414
  Serious: Yes (Hospitalization)
  Sender: FDA-Public Use
  Company Number: US-ROCHE-1182429

PATIENT
  Age: 49 Year
  Sex: Female
  Weight: 53.35 kg

DRUGS (8)
  1. ZELBORAF [Suspect]
     Indication: METASTATIC MALIGNANT MELANOMA
     Route: 048
     Dates: start: 20121219, end: 20121230
  2. ZELBORAF [Suspect]
     Route: 048
     Dates: start: 20130109, end: 20130311
  3. ZELBORAF [Suspect]
     Route: 048
     Dates: start: 20130318
  4. PREDNISONE [Concomitant]
     Indication: RASH
     Route: 048
  5. PREDNISONE [Concomitant]
     Route: 048
     Dates: start: 20120109
  6. MORPHINE [Concomitant]
     Indication: PAIN
     Route: 048
  7. NAPROXEN [Concomitant]
     Indication: ARTHRALGIA
     Route: 048
  8. ZOFRAN [Concomitant]
     Indication: NAUSEA
     Route: 048

REACTIONS (23)
  - Pyrexia [Recovered/Resolved]
  - Weight decreased [Recovered/Resolved]
  - Decreased appetite [Recovered/Resolved]
  - Asthenia [Unknown]
  - Anaemia [Unknown]
  - Fatigue [Unknown]
  - Pulmonary oedema [Recovered/Resolved]
  - Night sweats [Not Recovered/Not Resolved]
  - Pruritus [Recovered/Resolved]
  - Pyrexia [Recovered/Resolved]
  - Hepatic enzyme increased [Unknown]
  - Rash generalised [Recovered/Resolved]
  - Fatigue [Not Recovered/Not Resolved]
  - Rash [Not Recovered/Not Resolved]
  - Melanocytic naevus [Not Recovered/Not Resolved]
  - Arthralgia [Recovering/Resolving]
  - Nausea [Recovering/Resolving]
  - Skin exfoliation [Recovering/Resolving]
  - Melanocytic naevus [Recovered/Resolved]
  - Hyperkeratosis [Not Recovered/Not Resolved]
  - Pain of skin [Not Recovered/Not Resolved]
  - Hyperkeratosis [Recovering/Resolving]
  - Sunburn [Not Recovered/Not Resolved]
